FAERS Safety Report 6677226-X (Version None)
Quarter: 2010Q2

REPORT INFORMATION
  Report Type: 
  Country: None (occurrence: None)
  Receive Date: 20100402
  Receipt Date: 20090720
  Transmission Date: 20101027
  Serious: No
  Sender: FDA-Public Use
  Company Number: 2009-00492

PATIENT
  Sex: Female

DRUGS (1)
  1. ZICAM NASAL PRODUCTS [Suspect]
     Dosage: QD, 1 DAY, 1 DOSE
     Dates: start: 20080915, end: 20080915

REACTIONS (5)
  - AGEUSIA [None]
  - ANOSMIA [None]
  - NASAL DISCOMFORT [None]
  - RHINALGIA [None]
  - SINUS HEADACHE [None]
